FAERS Safety Report 10842959 (Version 1)
Quarter: 2015Q1

REPORT INFORMATION
  Report Type: Report from Study
  Country: US (occurrence: US)
  Receive Date: 20150220
  Receipt Date: 20150220
  Transmission Date: 20150721
  Serious: Yes (Other)
  Sender: FDA-Public Use
  Company Number: US-UCBSA-2015004195

PATIENT
  Age: 16 Year
  Sex: Male
  Weight: 69.1 kg

DRUGS (1)
  1. CERTOLIZUMAB PEGOL JIA [Suspect]
     Active Substance: CERTOLIZUMAB PEGOL
     Indication: JUVENILE IDIOPATHIC ARTHRITIS
     Dosage: 100 MG, EV 2 WEEKS(QOW); NUMBER OF DOSES RECEIVED: 73
     Route: 058
     Dates: start: 20120418

REACTIONS (1)
  - Hair follicle tumour benign [Recovered/Resolved]

NARRATIVE: CASE EVENT DATE: 20141105
